FAERS Safety Report 5875573-2 (Version None)
Quarter: 2008Q3

REPORT INFORMATION
  Report Type: 
  Country: None (occurrence: None)
  Receive Date: 20080909
  Receipt Date: 20080826
  Transmission Date: 20090109
  Serious: Yes (Other)
  Sender: FDA-Public Use
  Company Number: US-ELI_LILLY_AND_COMPANY-US200808005858

PATIENT
  Sex: Male

DRUGS (1)
  1. BYETTA [Suspect]
     Dosage: 10 UG, UNKNOWN
     Route: 065
     Dates: start: 20070115, end: 20080826

REACTIONS (1)
  - PANCREATITIS ACUTE [None]
